FAERS Safety Report 5223260-6 (Version None)
Quarter: 2007Q1

REPORT INFORMATION
  Report Type: 
  Country: None (occurrence: None)
  Receive Date: 20061201
  Receipt Date: 20060804
  Transmission Date: 20070707
  Serious: No
  Sender: FDA-Public Use
  Company Number: 2005PV002670

PATIENT
  Age: 72 Year
  Sex: Male
  Weight: 82.5547 kg

DRUGS (23)
  1. BYETTA [Suspect]
     Indication: DIABETES MELLITUS NON-INSULIN-DEPENDENT
     Dosage: SEE IMAGE
     Route: 058
     Dates: start: 20050926, end: 20050926
  2. BYETTA [Suspect]
     Indication: DIABETES MELLITUS NON-INSULIN-DEPENDENT
     Dosage: SEE IMAGE
     Route: 058
     Dates: start: 20050927, end: 20060101
  3. BYETTA [Suspect]
     Indication: DIABETES MELLITUS NON-INSULIN-DEPENDENT
     Dosage: SEE IMAGE
     Route: 058
     Dates: start: 20060521, end: 20060101
  4. BYETTA [Suspect]
     Indication: DIABETES MELLITUS NON-INSULIN-DEPENDENT
     Dosage: SEE IMAGE
     Route: 058
     Dates: start: 20050926
  5. BYETTA [Suspect]
  6. BYETTA [Suspect]
  7. AVANDIA [Suspect]
     Indication: DIABETES MELLITUS NON-INSULIN-DEPENDENT
     Dosage: 4 MG;QD; PO
     Route: 048
  8. GLYBURIDE [Concomitant]
  9. MONOPRIL [Concomitant]
  10. AVAPRO [Concomitant]
  11. LIPITOR [Concomitant]
  12. VYTORIN [Concomitant]
  13. ASPIRIN [Concomitant]
  14. ANGIOTENSIN RECEPTOR BLOCKER [Concomitant]
  15. HYDROCHLOROTHIAZIDE [Concomitant]
  16. . [Concomitant]
  17. AVAPRO [Concomitant]
  18. THIAMINE HCL [Concomitant]
  19. ALLOPURINOL [Concomitant]
  20. FOLIC ACID [Concomitant]
  21. APRO [Concomitant]
  22. EZETIMIBE [Concomitant]
  23. SIMVASTATIN [Concomitant]

REACTIONS (15)
  - ANOREXIA [None]
  - BLOOD GLUCOSE DECREASED [None]
  - BLOOD GLUCOSE INCREASED [None]
  - CONFUSIONAL STATE [None]
  - DIZZINESS [None]
  - ERUCTATION [None]
  - FEELING ABNORMAL [None]
  - GASTROOESOPHAGEAL REFLUX DISEASE [None]
  - HYPOGLYCAEMIA [None]
  - INJECTION SITE PAIN [None]
  - NAUSEA [None]
  - THERAPEUTIC RESPONSE UNEXPECTED [None]
  - THROAT IRRITATION [None]
  - VISION BLURRED [None]
  - WEIGHT DECREASED [None]
